FAERS Safety Report 12353788 (Version 1)
Quarter: 2016Q2

REPORT INFORMATION
  Report Type: Spontaneous
  Country: SE (occurrence: SE)
  Receive Date: 20160511
  Receipt Date: 20160511
  Transmission Date: 20160815
  Serious: Yes (Death, Other)
  Sender: FDA-Public Use
  Company Number: SE-009507513-1602SWE011363

PATIENT
  Age: 77 Year
  Sex: Female

DRUGS (6)
  1. KEYTRUDA [Suspect]
     Active Substance: PEMBROLIZUMAB
     Indication: MALIGNANT MELANOMA
     Dosage: UNK
     Dates: start: 20141028, end: 20160104
  2. FRAGMIN [Concomitant]
     Active Substance: DALTEPARIN SODIUM
     Indication: THROMBOSIS
     Dosage: 1 INJECTION, QD, STRENGTH: 12500 E
  3. ALVEDON [Concomitant]
     Active Substance: ACETAMINOPHEN
     Indication: ARTHRALGIA
     Dosage: 1 G  TABLET, QID
     Route: 048
  4. CILAXORAL [Concomitant]
     Indication: CONSTIPATION
     Dosage: UNK, PRN, STRENGTH:7.5 MG/ML
  5. ZOPICLONE [Concomitant]
     Active Substance: ZOPICLONE
     Indication: INSOMNIA
     Dosage: 5 MG (1 TABLET), QD
     Route: 048
  6. OMEPRAZOLE. [Concomitant]
     Active Substance: OMEPRAZOLE
     Indication: ABDOMINAL DISCOMFORT
     Dosage: 20MG (1 TABLET), QD
     Route: 048

REACTIONS (7)
  - Metastases to bone [Unknown]
  - Arthritis infective [Not Recovered/Not Resolved]
  - Malignant neoplasm progression [Unknown]
  - Arthropathy [Unknown]
  - Metastases to central nervous system [Fatal]
  - Knee arthroplasty [Unknown]
  - Pathological fracture [Unknown]

NARRATIVE: CASE EVENT DATE: 2015
